FAERS Safety Report 5514834-3 (Version None)
Quarter: 2007Q4

REPORT INFORMATION
  Report Type: 
  Country: None (occurrence: None)
  Receive Date: 20071113
  Receipt Date: 20071106
  Transmission Date: 20080405
  Serious: Yes (Hospitalization, Other)
  Sender: FDA-Public Use
  Company Number: BR-ELI_LILLY_AND_COMPANY-BR200711001462

PATIENT
  Sex: Female
  Weight: 42 kg

DRUGS (4)
  1. HUMALOG [Suspect]
     Indication: DIABETES MELLITUS
     Dosage: 21 IU, DAILY (1/D)
     Route: 058
     Dates: start: 20071001
  2. PURAN T4 [Concomitant]
     Indication: HYPOTHYROIDISM
     Dosage: UNK, UNKNOWN
     Route: 065
  3. CITALOPRAM HYDROBROMIDE [Concomitant]
     Indication: DEPRESSION
     Dosage: UNK, UNKNOWN
     Route: 065
     Dates: start: 20070927, end: 20071026
  4. LEVEMIR [Concomitant]
     Indication: DIABETES MELLITUS
     Dosage: 7 IU, DAILY (1/D)
     Route: 065

REACTIONS (8)
  - DIABETES MELLITUS INADEQUATE CONTROL [None]
  - DYSPNOEA [None]
  - GASTRITIS [None]
  - HYPERGLYCAEMIA [None]
  - HYPOGLYCAEMIA [None]
  - INFECTION [None]
  - KETOACIDOSIS [None]
  - VOMITING [None]
